FAERS Safety Report 6635427-0 (Version None)
Quarter: 2010Q1

REPORT INFORMATION
  Report Type: 
  Country: None (occurrence: None)
  Receive Date: 20100315
  Receipt Date: 20091006
  Transmission Date: 20100710
  Serious: No
  Sender: FDA-Public Use
  Company Number: US-ABBOTT-09P-163-0601102-00

PATIENT
  Sex: Female

DRUGS (5)
  1. DEPAKOTE [Suspect]
     Indication: BIPOLAR DISORDER
     Dates: start: 19940101, end: 20090801
  2. ZOVIA 1/35E-21 [Suspect]
     Indication: CONTRACEPTION
     Dosage: 1/35-28 X 1 TABLET DAILY
     Route: 048
     Dates: start: 19990101
  3. ZOVIA 1/35E-21 [Suspect]
     Indication: POLYCYSTIC OVARIES
  4. INVEGA [Suspect]
     Indication: PARANOIA
     Dosage: 3MG DAILY
     Route: 048
     Dates: start: 20090201, end: 20090801
  5. INVEGA [Suspect]
     Dosage: 6MG DAILY
     Route: 048
     Dates: start: 20090801

REACTIONS (1)
  - MENSTRUATION IRREGULAR [None]
